FAERS Safety Report 7733043 (Version 2)
Quarter: 2012Q4

REPORT INFORMATION
  Report Type: 
  Country: US (occurrence: US)
  Receive Date: 20101223
  Receipt Date: 20120907
  Transmission Date: 20130627
  Serious: No
  Sender: FDA-Public Use
  Company Number: US-BIOGENIDEC-2010BI044330

PATIENT
  Age: 39 Year
  Sex: Female

DRUGS (2)
  1. TYSABRI [Suspect]
     Indication: MULTIPLE SCLEROSIS
     Route: 042
     Dates: start: 20071219, end: 20110406
  2. TYSABRI [Suspect]
     Indication: MULTIPLE SCLEROSIS
     Route: 042
     Dates: start: 20110915

REACTIONS (6)
  - Abdominal discomfort [Recovered/Resolved]
  - Speech disorder [Recovered/Resolved]
  - Dysarthria [Recovered/Resolved]
  - Agraphia [Recovered/Resolved]
  - Blindness [Recovered/Resolved]
  - Multiple sclerosis [Recovered/Resolved]
